FAERS Safety Report 8163128-9 (Version None)
Quarter: 2012Q1

REPORT INFORMATION
  Report Type: 
  Country: None (occurrence: None)
  Receive Date: 20120221
  Receipt Date: 20120215
  Transmission Date: 20120608
  Serious: Yes (Other)
  Sender: FDA-Public Use
  Company Number: 2012SP008751

PATIENT
  Age: 66 Year
  Sex: Male
  Weight: 58 kg

DRUGS (9)
  1. PEG-INTRON [Suspect]
     Indication: VIRAEMIA
     Dosage: 80 MCG; QW; SC
     Route: 058
  2. PEG-INTRON [Suspect]
     Indication: HEPATITIS C
     Dosage: 80 MCG; QW; SC
     Route: 058
  3. NIZATIDINE [Concomitant]
  4. REBETOL [Suspect]
     Indication: VIRAEMIA
     Dosage: 600 MG; QD; PO
     Route: 048
     Dates: start: 20120130
  5. REBETOL [Suspect]
     Indication: HEPATITIS C
     Dosage: 600 MG; QD; PO
     Route: 048
     Dates: start: 20120130
  6. TELAVIC (TELAPREVIR (INVESTIGATIONAL DRUG) [Suspect]
     Indication: VIRAEMIA
     Dosage: 2250 MG; QD; PO
     Route: 048
     Dates: start: 20120130
  7. TELAVIC (TELAPREVIR (INVESTIGATIONAL DRUG) [Suspect]
     Indication: HEPATITIS C
     Dosage: 2250 MG; QD; PO
     Route: 048
     Dates: start: 20120130
  8. CLARITIN [Suspect]
     Dosage: 10 MG; QD; PO
     Route: 048
     Dates: start: 20120130
  9. CANDESARTAN CILEXETIL [Concomitant]

REACTIONS (4)
  - DEHYDRATION [None]
  - RENAL DISORDER [None]
  - BLOOD URIC ACID INCREASED [None]
  - VOMITING [None]
